FAERS Safety Report 4767147-1 (Version None)
Quarter: 2005Q3

REPORT INFORMATION
  Report Type: 
  Country: None (occurrence: None)
  Receive Date: 20050913
  Receipt Date: 20050829
  Transmission Date: 20060218
  Serious: Yes (Hospitalization)
  Sender: FDA-Public Use
  Company Number: AT-BRISTOL-MYERS SQUIBB COMPANY-13097217

PATIENT
  Age: 78 Year
  Sex: Male

DRUGS (10)
  1. CETUXIMAB [Suspect]
     Indication: COLORECTAL CANCER METASTATIC
     Dosage: MOST RECENT TX ON 25-AUG-05. PT HAD REC'D 5 INFUSIONS TO DATE.
     Route: 041
     Dates: start: 20050728
  2. FLUOROURACIL [Suspect]
     Indication: COLORECTAL CANCER METASTATIC
     Dosage: MOST RECENT TX ON 25-AUG-05. PT HAD REC'D 3 INFUSIONS TO DATE.
     Route: 042
     Dates: start: 20050728
  3. LEUCOVORIN CALCIUM [Suspect]
     Indication: COLORECTAL CANCER METASTATIC
     Dosage: MOST RECENT TX ON 25-AUG-05. PT HAD REC'D 3 INFUSIONS TO DATE.
     Route: 042
     Dates: start: 20050728
  4. OXALIPLATIN [Suspect]
     Indication: COLORECTAL CANCER METASTATIC
     Dosage: MOST RECENT TX ON 25-AUG-05. PT HAD REC'D 3 INFUSIONS TO DATE.
     Route: 042
     Dates: start: 20050728
  5. DICLOFENAC [Concomitant]
  6. PANTOPRAZOLE [Concomitant]
  7. DALTEPARIN [Concomitant]
  8. DOXYCYCLINE [Concomitant]
  9. TRAMADOL HCL [Concomitant]
  10. FUROSEMIDE [Concomitant]

REACTIONS (1)
  - HYPERTENSION [None]
